FAERS Safety Report 5079976-8 (Version None)
Quarter: 2006Q3

REPORT INFORMATION
  Report Type: 
  Country: None (occurrence: None)
  Receive Date: 20060720
  Receipt Date: 20050705
  Transmission Date: 20061208
  Serious: Yes (Hospitalization)
  Sender: FDA-Public Use
  Company Number: 2005100079

PATIENT
  Age: 60 Year
  Sex: Female
  Weight: 225 kg

DRUGS (13)
  1. CELEBREX [Suspect]
     Indication: ILL-DEFINED DISORDER
     Dates: start: 20000311, end: 20040607
  2. SYNTHROID [Concomitant]
  3. AMITRIPTYLINE HCL [Concomitant]
  4. PRAVACHOL [Concomitant]
  5. PLAVIX [Concomitant]
  6. AMIODARONE HCL [Concomitant]
  7. MONTELUKAST SODIUM [Concomitant]
  8. COUMADIN [Concomitant]
  9. MAXZIDE [Concomitant]
  10. FLOVENT [Concomitant]
  11. BENICAR [Concomitant]
  12. TRIAMTERENE [Concomitant]
  13. ULTRAM [Concomitant]

REACTIONS (1)
  - ACUTE MYOCARDIAL INFARCTION [None]
